FAERS Safety Report 24007254 (Version 1)
Quarter: 2024Q2

REPORT INFORMATION
  Report Type: Spontaneous
  Country: US (occurrence: US)
  Receive Date: 20240624
  Receipt Date: 20240624
  Transmission Date: 20240715
  Serious: Yes (Other)
  Sender: FDA-Public Use
  Company Number: US-BRISTOL-MYERS SQUIBB COMPANY-2024-099750

PATIENT
  Age: 62 Year
  Sex: Male
  Weight: 191.42 kg

DRUGS (1)
  1. POMALYST [Suspect]
     Active Substance: POMALIDOMIDE
     Indication: Kaposi^s sarcoma
     Dosage: 4MG CAPSULE DAILY FOR 21 DAYS THEN 7 DAYS OFF
     Route: 048

REACTIONS (1)
  - Malignant neoplasm progression [Unknown]
